FAERS Safety Report 7037253-X (Version None)
Quarter: 2010Q4

REPORT INFORMATION
  Report Type: 
  Country: None (occurrence: None)
  Receive Date: 20101011
  Receipt Date: 20100929
  Transmission Date: 20110411
  Serious: Yes (Other)
  Sender: FDA-Public Use
  Company Number: US-PFIZER INC-2010094027

PATIENT
  Sex: Male
  Weight: 16.2 kg

DRUGS (1)
  1. GENOTROPIN [Suspect]
     Indication: BODY HEIGHT BELOW NORMAL
     Dosage: 0.6 MG, 1X/DAY, SEVEN DAY
     Route: 058
     Dates: start: 20100203

REACTIONS (1)
  - WHITE BLOOD CELL COUNT DECREASED [None]
